FAERS Safety Report 21422271 (Version 1)
Quarter: 2022Q4

REPORT INFORMATION
  Report Type: Spontaneous
  Country: FR (occurrence: FR)
  Receive Date: 20221007
  Receipt Date: 20221007
  Transmission Date: 20230113
  Serious: Yes (Hospitalization, Other)
  Sender: FDA-Public Use
  Company Number: None

PATIENT
  Age: 56 Year
  Sex: Male

DRUGS (2)
  1. XANAX [Suspect]
     Active Substance: ALPRAZOLAM
     Indication: Product used for unknown indication
     Dosage: 8 TABLETS OF 0.5G PER DAY SINCE JANUARY 2021
     Route: 048
     Dates: start: 2016
  2. TRAMADOL [Suspect]
     Active Substance: TRAMADOL
     Indication: Product used for unknown indication
     Dosage: 8 TO 14 TABLETS PER DAY
     Route: 048

REACTIONS (4)
  - Drug dependence [Recovering/Resolving]
  - Drug detoxification [Recovering/Resolving]
  - Memory impairment [Not Recovered/Not Resolved]
  - Intentional product misuse [Recovering/Resolving]

NARRATIVE: CASE EVENT DATE: 20210406
